FAERS Safety Report 9807493 (Version 1)
Quarter: 2014Q1

REPORT INFORMATION
  Report Type: Spontaneous
  Country: US (occurrence: US)
  Receive Date: 20140110
  Receipt Date: 20140110
  Transmission Date: 20141002
  Serious: No
  Sender: FDA-Public Use
  Company Number: US-SA-2013SA094913

PATIENT
  Sex: Male

DRUGS (2)
  1. PLAVIX [Suspect]
     Indication: ARTERIAL BYPASS OPERATION
     Route: 065
  2. NEXIUM [Suspect]
     Route: 065

REACTIONS (3)
  - International normalised ratio increased [Unknown]
  - Contusion [Unknown]
  - Nodule [Unknown]
